FAERS Safety Report 11745895 (Version 1)
Quarter: 2015Q4

REPORT INFORMATION
  Report Type: Spontaneous
  Country: US (occurrence: None)
  Receive Date: 20151116
  Receipt Date: 20151116
  Transmission Date: 20160304
  Serious: Yes (Hospitalization)
  Sender: FDA-Public Use
  Company Number: None

PATIENT
  Age: 57 Year
  Sex: Female
  Weight: 72.58 kg

DRUGS (8)
  1. LOSARTAN. [Concomitant]
     Active Substance: LOSARTAN
  2. HCL ACTIVATOR [Concomitant]
  3. OMEGA-3 ACIDS [Concomitant]
     Active Substance: OMEGA-3 FATTY ACIDS
  4. LEVOTHYROXINE. [Concomitant]
     Active Substance: LEVOTHYROXINE
  5. HCL [Concomitant]
  6. CQ 10 [Concomitant]
  7. PROBIOTIC [Concomitant]
     Active Substance: PROBIOTICS NOS
  8. LIALDA [Suspect]
     Active Substance: MESALAMINE
     Indication: COLITIS ULCERATIVE
     Dosage: 4
     Route: 048
     Dates: start: 20151008, end: 20151011

REACTIONS (7)
  - Back pain [None]
  - Chest pain [None]
  - Joint swelling [None]
  - Hypersensitivity [None]
  - Vomiting [None]
  - Musculoskeletal pain [None]
  - Pain in extremity [None]

NARRATIVE: CASE EVENT DATE: 20151008
